FAERS Safety Report 10195829 (Version 1)
Quarter: 2014Q2

REPORT INFORMATION
  Report Type: Spontaneous
  Country: CN (occurrence: None)
  Receive Date: 20140520
  Receipt Date: 20140520
  Transmission Date: 20141212
  Serious: Yes (Other)
  Sender: FDA-Public Use
  Company Number: B0994741A

PATIENT
  Age: 40 Year
  Sex: Male

DRUGS (2)
  1. LAMIVUDINE-HBV [Suspect]
     Indication: CHRONIC HEPATITIS B
  2. ADEFOVIR DIPIVOXIL [Suspect]
     Indication: CHRONIC HEPATITIS B

REACTIONS (3)
  - Hepatitis B [None]
  - Drug resistance [None]
  - Viral mutation identified [None]
